FAERS Safety Report 17455093 (Version 1)
Quarter: 2020Q1

REPORT INFORMATION
  Report Type: Spontaneous
  Country: US (occurrence: US)
  Receive Date: 20200212
  Receipt Date: 20200212
  Transmission Date: 20200409
  Serious: No
  Sender: FDA-Public Use
  Company Number: None

PATIENT
  Age: 83 Year
  Sex: Female

DRUGS (2)
  1. IBRANCE [Suspect]
     Active Substance: PALBOCICLIB
     Dosage: ?          OTHER FREQUENCY:UNKNOWN;?
     Route: 048
     Dates: start: 201901
  2. LETROZOLE 2.5MG [Concomitant]
     Active Substance: LETROZOLE

REACTIONS (2)
  - Therapy change [None]
  - Treatment failure [None]

NARRATIVE: CASE EVENT DATE: 20200212
